FAERS Safety Report 6456006-4 (Version None)
Quarter: 2009Q4

REPORT INFORMATION
  Report Type: 
  Country: None (occurrence: None)
  Receive Date: 20091125
  Receipt Date: 20091120
  Transmission Date: 20100525
  Serious: Yes (Death, Other)
  Sender: FDA-Public Use
  Company Number: JP-JNJFOC-20091005726

PATIENT

DRUGS (1)
  1. DUROTEP [Suspect]
     Indication: PAIN
     Route: 048

REACTIONS (3)
  - INADEQUATE ANALGESIA [None]
  - INTENTIONAL DRUG MISUSE [None]
  - MALIGNANT NEOPLASM PROGRESSION [None]
